FAERS Safety Report 16062210 (Version 1)
Quarter: 2019Q1

REPORT INFORMATION
  Report Type: Spontaneous
  Country: US (occurrence: US)
  Receive Date: 20190211
  Receipt Date: 20190211
  Transmission Date: 20190418
  Serious: No
  Sender: FDA-Public Use
  Company Number: None

PATIENT
  Age: 48 Year
  Sex: Female

DRUGS (1)
  1. STELARA [Suspect]
     Active Substance: USTEKINUMAB
     Dates: start: 20180128

REACTIONS (3)
  - Ageusia [None]
  - Decreased appetite [None]
  - Tooth extraction [None]

NARRATIVE: CASE EVENT DATE: 20190128
